FAERS Safety Report 8169518 (Version 3)
Quarter: 2016Q2

REPORT INFORMATION
  Report Type: Spontaneous
  Country: US (occurrence: US)
  Receive Date: 20111005
  Receipt Date: 20160628
  Transmission Date: 20160815
  Serious: No
  Sender: FDA-Public Use
  Company Number: US-GLAXOSMITHKLINE-A0946761A

PATIENT
  Age: 71 Year
  Sex: Female

DRUGS (2)
  1. ALLI [Suspect]
     Active Substance: ORLISTAT
     Indication: WEIGHT LOSS DIET
     Dosage: UNK
     Route: 048
     Dates: end: 20110921
  2. ALLI [Suspect]
     Active Substance: ORLISTAT
     Dosage: UNK
     Dates: start: 2015, end: 2015

REACTIONS (9)
  - Ageusia [Recovered/Resolved]
  - Therapeutic response unexpected [Unknown]
  - Steatorrhoea [Recovered/Resolved]
  - Hypovitaminosis [Recovered/Resolved]
  - Dysgeusia [Not Recovered/Not Resolved]
  - Drug administration error [Unknown]
  - Drug ineffective [Unknown]
  - Blood zinc decreased [Not Recovered/Not Resolved]
  - Anosmia [Recovered/Resolved]
